FAERS Safety Report 17474701 (Version 1)
Quarter: 2020Q1

REPORT INFORMATION
  Report Type: Report from Study
  Country: US (occurrence: US)
  Receive Date: 20200228
  Receipt Date: 20200228
  Transmission Date: 20200409
  Serious: Yes (Other)
  Sender: FDA-Public Use
  Company Number: US-JNJFOC-20190603582

PATIENT
  Age: 41 Year
  Sex: Female

DRUGS (2)
  1. STELARA [Suspect]
     Active Substance: USTEKINUMAB
     Indication: CROHN^S DISEASE
     Route: 058
     Dates: start: 20190524
  2. VITAMIN D [Concomitant]
     Active Substance: VITAMIN D NOS
     Route: 065

REACTIONS (10)
  - Muscle spasms [Recovered/Resolved]
  - Sinusitis [Unknown]
  - Nasopharyngitis [Unknown]
  - Ear infection [Unknown]
  - Crohn^s disease [Not Recovered/Not Resolved]
  - Off label use [Unknown]
  - Memory impairment [Unknown]
  - Joint swelling [Recovered/Resolved]
  - Headache [Unknown]
  - Product use issue [Unknown]

NARRATIVE: CASE EVENT DATE: 2019
